FAERS Safety Report 6631119-2 (Version None)
Quarter: 2010Q1

REPORT INFORMATION
  Report Type: 
  Country: None (occurrence: None)
  Receive Date: 20100309
  Receipt Date: 20100226
  Transmission Date: 20100710
  Serious: Yes (Other)
  Sender: FDA-Public Use
  Company Number: 2010SP012562

PATIENT

DRUGS (5)
  1. MIRALAX [Suspect]
     Indication: DRUG USE FOR UNKNOWN INDICATION
     Dosage: PO
     Route: 048
  2. MILK OF MAGNESIA TAB [Suspect]
     Indication: DRUG USE FOR UNKNOWN INDICATION
  3. VITAMIN TAB [Concomitant]
  4. MINERAL OIL [Concomitant]
  5. PSYLLIUM HUSK /05655301/ [Concomitant]

REACTIONS (3)
  - DRY MOUTH [None]
  - HAEMORRHOIDS [None]
  - MIDDLE INSOMNIA [None]
